FAERS Safety Report 9927734 (Version 1)
Quarter: 2014Q1

REPORT INFORMATION
  Report Type: Spontaneous
  Country: US (occurrence: US)
  Receive Date: 20140227
  Receipt Date: 20140227
  Transmission Date: 20141002
  Serious: Yes (Other)
  Sender: FDA-Public Use
  Company Number: US-DRREDDYS-USA/USA/13/0036266

PATIENT
  Age: 25 Year
  Sex: Female

DRUGS (8)
  1. VENLAFAXINE HYDROCHLORIDE ER CAPSULES, 37.5 MG (BASE) [Suspect]
     Indication: MAJOR DEPRESSION
     Route: 065
  2. VENLAFAXINE HYDROCHLORIDE ER CAPSULES, 37.5 MG (BASE) [Suspect]
     Route: 065
  3. VENLAFAXINE HYDROCHLORIDE ER CAPSULES, 37.5 MG (BASE) [Suspect]
     Route: 065
  4. VENLAFAXINE HYDROCHLORIDE ER CAPSULES, 37.5 MG (BASE) [Suspect]
     Route: 065
  5. LAMOTRIGINE TABLETS [Concomitant]
     Indication: CONVULSION
     Route: 065
  6. CLONAZEPAM [Concomitant]
     Indication: CONVULSION
     Route: 065
  7. HYDROXYZINE [Concomitant]
     Indication: ANXIETY
     Dosage: 25-50 MG ORALLY 3 TIMES DAILY AS NEEDED
     Route: 065
  8. ALPRAZOLAM [Concomitant]
     Indication: ANXIETY
     Route: 065

REACTIONS (1)
  - Grand mal convulsion [Unknown]
